FAERS Safety Report 21026926 (Version 1)
Quarter: 2022Q2

REPORT INFORMATION
  Report Type: Spontaneous
  Country: US (occurrence: None)
  Receive Date: 20220629
  Receipt Date: 20220629
  Transmission Date: 20220720
  Serious: No
  Sender: FDA-Public Use
  Company Number: None

PATIENT
  Age: 49 Year
  Sex: Female

DRUGS (1)
  1. AMBRISENTAN [Suspect]
     Active Substance: AMBRISENTAN
     Indication: Pulmonary hypertension
     Dosage: FREQUENCY : DAILY;?
     Route: 048
     Dates: start: 20190719

REACTIONS (5)
  - Chest pain [None]
  - Limb injury [None]
  - Stress [None]
  - Contusion [None]
  - Musculoskeletal disorder [None]

NARRATIVE: CASE EVENT DATE: 20220609
